FAERS Safety Report 7936683-9 (Version None)
Quarter: 2011Q4

REPORT INFORMATION
  Report Type: 
  Country: None (occurrence: None)
  Receive Date: 20111123
  Receipt Date: 20111117
  Transmission Date: 20120403
  Serious: Yes (Other)
  Sender: FDA-Public Use
  Company Number: PT-PFIZER INC-2011276644

PATIENT
  Age: 36 Year
  Sex: Female

DRUGS (10)
  1. PREDNISOLONE [Suspect]
     Dosage: 80 MG, DAILY
  2. METHOTREXATE [Suspect]
     Dosage: 12.5 MG, WEEKLY
  3. INFLIXIMAB [Suspect]
     Indication: SARCOIDOSIS
     Dosage: 5MG/KG
  4. PREDNISOLONE [Suspect]
     Indication: SARCOIDOSIS
     Dosage: 40 MG, DAILY
     Route: 048
  5. PREDNISOLONE [Suspect]
     Dosage: 60 MG, DAILY
  6. METHOTREXATE [Suspect]
     Indication: SARCOIDOSIS
     Dosage: 15 MG, WEEKLY
  7. PREDNISOLONE [Suspect]
     Dosage: 15 MG, DAILY
  8. PREDNISOLONE [Suspect]
     Dosage: 25 MG, DAILY
  9. METHYLPREDNISOLONE [Suspect]
     Indication: SARCOIDOSIS
     Dosage: 80 MG, DAILY
  10. METHOTREXATE [Suspect]
     Dosage: 10 MG, WEEKLY

REACTIONS (8)
  - ABNORMAL WEIGHT GAIN [None]
  - HERPES ZOSTER [None]
  - VISUAL ACUITY REDUCED [None]
  - EYE PAIN [None]
  - TYPE 2 DIABETES MELLITUS [None]
  - HEADACHE [None]
  - TOXIC SKIN ERUPTION [None]
  - HYPERTENSION [None]
